FAERS Safety Report 20908922 (Version 1)
Quarter: 2022Q2

REPORT INFORMATION
  Report Type: Spontaneous
  Country: JP (occurrence: JP)
  Receive Date: 20220603
  Receipt Date: 20220603
  Transmission Date: 20220720
  Serious: Yes (Other)
  Sender: FDA-Public Use
  Company Number: JP-NOVARTISPH-NVSJ2022JP091132

PATIENT
  Age: 0 Year
  Sex: Male
  Weight: 2.44 kg

DRUGS (9)
  1. COSENTYX [Suspect]
     Active Substance: SECUKINUMAB
     Indication: Foetal exposure during pregnancy
     Dosage: 300 MG, QW
     Route: 064
     Dates: start: 20211125
  2. TALTZ [Concomitant]
     Active Substance: IXEKIZUMAB
     Indication: Foetal exposure during pregnancy
     Dosage: 80 MG
     Route: 064
     Dates: start: 20200124
  3. TALTZ [Concomitant]
     Active Substance: IXEKIZUMAB
     Dosage: 160 MG
     Route: 064
  4. TALTZ [Concomitant]
     Active Substance: IXEKIZUMAB
     Dosage: 240 MG
     Route: 064
  5. LOXOPROFEN [Concomitant]
     Active Substance: LOXOPROFEN
     Indication: Foetal exposure during pregnancy
     Dosage: 60 MG
     Route: 064
     Dates: start: 20190417
  6. FAROPENEM SODIUM [Concomitant]
     Active Substance: FAROPENEM SODIUM
     Indication: Foetal exposure during pregnancy
     Dosage: 600 MG
     Route: 064
     Dates: start: 20211122, end: 20211222
  7. DIETARY SUPPLEMENT\PROBIOTICS [Concomitant]
     Active Substance: DIETARY SUPPLEMENT\PROBIOTICS
     Indication: Foetal exposure during pregnancy
     Dosage: 3 DOSAGE FORM
     Route: 064
     Dates: start: 20211122, end: 20211222
  8. ROXITHROMYCIN [Concomitant]
     Active Substance: ROXITHROMYCIN
     Indication: Foetal exposure during pregnancy
     Dosage: 150 MG, BID
     Route: 064
     Dates: start: 20211125
  9. SULFAMETHOXAZOLE\TRIMETHOPRIM [Concomitant]
     Active Substance: SULFAMETHOXAZOLE\TRIMETHOPRIM
     Indication: Foetal exposure during pregnancy
     Dosage: 1 DOSAGE FORM
     Route: 064
     Dates: start: 20211202

REACTIONS (5)
  - Premature baby [Unknown]
  - Low birth weight baby [Unknown]
  - Hypoglycaemia neonatal [Unknown]
  - Hyperventilation [Unknown]
  - Foetal exposure during pregnancy [Unknown]

NARRATIVE: CASE EVENT DATE: 20220207
